FAERS Safety Report 21195945 (Version 3)
Quarter: 2022Q4

REPORT INFORMATION
  Report Type: Report from Study
  Country: US (occurrence: US)
  Receive Date: 20220810
  Receipt Date: 20221107
  Transmission Date: 20230112
  Serious: Yes (Hospitalization, Other)
  Sender: FDA-Public Use
  Company Number: US-GW PHARMA-202110USGW04959

PATIENT
  Sex: Male
  Weight: 52.608 kg

DRUGS (6)
  1. EPIDIOLEX [Suspect]
     Active Substance: CANNABIDIOL
     Indication: Lennox-Gastaut syndrome
     Dosage: 100 MILLIGRAM
     Dates: start: 20210908
  2. EPIDIOLEX [Suspect]
     Active Substance: CANNABIDIOL
     Indication: Bronchiectasis
     Dosage: 4 MILLIGRAM VIA G-TUBE
     Route: 048
     Dates: start: 20210908
  3. EPIDIOLEX [Suspect]
     Active Substance: CANNABIDIOL
     Indication: Pneumonitis
     Dosage: 8 MILLILITER VIA G-TUBE
     Dates: start: 202110
  4. EPIDIOLEX [Suspect]
     Active Substance: CANNABIDIOL
     Indication: Chronic respiratory failure
     Dosage: 8 MILLILITER VIA G-TUBE
     Dates: start: 20211012
  5. EPIDIOLEX [Suspect]
     Active Substance: CANNABIDIOL
     Indication: Hypoxia
  6. EPIDIOLEX [Suspect]
     Active Substance: CANNABIDIOL
     Indication: Asthma

REACTIONS (3)
  - Emergency care [Not Recovered/Not Resolved]
  - Sepsis [Unknown]
  - Off label use [Unknown]

NARRATIVE: CASE EVENT DATE: 20210101
